FAERS Safety Report 23599128 (Version 1)
Quarter: 2024Q1

REPORT INFORMATION
  Report Type: Report from Study
  Country: ES (occurrence: ES)
  Receive Date: 20240306
  Receipt Date: 20240306
  Transmission Date: 20240410
  Serious: Yes (Other)
  Sender: FDA-Public Use
  Company Number: None

PATIENT
  Age: 64 Year
  Sex: Male
  Weight: 69 kg

DRUGS (3)
  1. PACLITAXEL [Suspect]
     Active Substance: PACLITAXEL
     Indication: Pancreatic carcinoma
     Dosage: PACLITAXEL (2698A)
     Route: 042
     Dates: start: 20230119
  2. GEMCITABINE [Suspect]
     Active Substance: GEMCITABINE
     Indication: Pancreatic carcinoma
     Dosage: GEMCITABINA (7314A)
     Route: 042
     Dates: start: 20230119
  3. FILGRASTIM [Suspect]
     Active Substance: FILGRASTIM
     Indication: Pancreatic carcinoma
     Dosage: FILGRASTIM (7089A)
     Route: 030
     Dates: start: 20230119

REACTIONS (2)
  - Asthenia [Recovering/Resolving]
  - Neuralgia [Recovering/Resolving]

NARRATIVE: CASE EVENT DATE: 20230119
